FAERS Safety Report 8125790-6 (Version None)
Quarter: 2012Q1

REPORT INFORMATION
  Report Type: 
  Country: None (occurrence: None)
  Receive Date: 20120209
  Receipt Date: 20120203
  Transmission Date: 20120608
  Serious: Yes (Hospitalization)
  Sender: FDA-Public Use
  Company Number: PHHY2011GB110729

PATIENT
  Age: 81 Year
  Sex: Female

DRUGS (7)
  1. DIGOXIN [Interacting]
     Dosage: 125 UG, QD
     Route: 048
     Dates: end: 20110910
  2. ISOSORBIDE MONONITRATE [Concomitant]
     Indication: ANGINA PECTORIS
     Dosage: 30 MG, BID
     Route: 048
  3. BENDROFLUMETHIAZIDE [Concomitant]
     Indication: BLOOD PRESSURE INCREASED
     Dosage: 2.5 MG, QD
     Route: 048
  4. CANDESARTAN CILEXETIL [Concomitant]
     Indication: BLOOD PRESSURE INCREASED
     Dosage: 8 MG, QD
     Route: 048
  5. WARFARIN SODIUM [Concomitant]
     Indication: ATRIAL FIBRILLATION
     Route: 048
  6. CLARITHROMYCIN [Suspect]
     Dosage: 500 MG, BID
     Route: 048
     Dates: start: 20110825, end: 20110908
  7. BISOPROLOL FUMARATE [Concomitant]
     Indication: ANGINA PECTORIS
     Dosage: 10 MG, QD
     Route: 048
     Dates: end: 20110910

REACTIONS (5)
  - TOXICITY TO VARIOUS AGENTS [None]
  - WEIGHT DECREASED [None]
  - DECREASED APPETITE [None]
  - DRUG INTERACTION [None]
  - HEART RATE DECREASED [None]
